FAERS Safety Report 8540890-4 (Version None)
Quarter: 2012Q3

REPORT INFORMATION
  Report Type: 
  Country: None (occurrence: None)
  Receive Date: 20120726
  Receipt Date: 20120724
  Transmission Date: 20120928
  Serious: No
  Sender: FDA-Public Use
  Company Number: US-PFIZER INC-2009297779

PATIENT
  Sex: Female
  Weight: 147 kg

DRUGS (9)
  1. ACETYLSALICYLIC ACID [Concomitant]
     Indication: PROPHYLAXIS
     Dosage: 81 MG, UNK
     Route: 048
  2. LISINOPRIL [Concomitant]
     Indication: HYPERTENSION
     Dosage: 10 MG, 1X/DAY
     Route: 048
  3. FISH OIL [Concomitant]
     Dosage: UNK
  4. ASCORBIC ACID [Concomitant]
     Dosage: UNK
  5. CALCIUM [Concomitant]
     Dosage: UNK
  6. GENOTROPIN [Suspect]
     Indication: GROWTH HORMONE DEFICIENCY
     Dosage: 0.4 MG, 1X/DAY, MINIQUICK
     Route: 058
     Dates: start: 20091026, end: 20110101
  7. GENOTROPIN [Suspect]
     Dosage: 0.4 MG, DAILY AT NIGHT, PEN
     Route: 058
     Dates: start: 20110601
  8. LEVOTHYROXINE SODIUM [Concomitant]
     Dosage: 175 UG, 1X/DAY
     Route: 048
  9. VITAMIN D [Concomitant]
     Dosage: UNK

REACTIONS (9)
  - DRUG INEFFECTIVE [None]
  - OEDEMA [None]
  - RENAL DISORDER [None]
  - FATIGUE [None]
  - PRURITUS [None]
  - PAIN IN EXTREMITY [None]
  - WEIGHT FLUCTUATION [None]
  - ARTHRALGIA [None]
  - PAIN [None]
